FAERS Safety Report 8000625-0 (Version None)
Quarter: 2011Q4

REPORT INFORMATION
  Report Type: 
  Country: None (occurrence: None)
  Receive Date: 20111216
  Receipt Date: 20111208
  Transmission Date: 20120403
  Serious: Yes (Other)
  Sender: FDA-Public Use
  Company Number: 2011300244

PATIENT

DRUGS (1)
  1. FRAGMIN [Suspect]
     Indication: DISSEMINATED INTRAVASCULAR COAGULATION

REACTIONS (2)
  - RENAL IMPAIRMENT [None]
  - PLATELET COUNT DECREASED [None]
